FAERS Safety Report 16611199 (Version 2)
Quarter: 2020Q4

REPORT INFORMATION
  Report Type: Report from Study
  Country: US (occurrence: US)
  Receive Date: 20190722
  Receipt Date: 20201118
  Transmission Date: 20210113
  Serious: Yes (Other)
  Sender: FDA-Public Use
  Company Number: US-SA-2019SA196845

PATIENT

DRUGS (3)
  1. DUPILUMAB [Suspect]
     Active Substance: DUPILUMAB
     Dosage: 600 MG, 1X
     Route: 058
     Dates: start: 202010, end: 202010
  2. DUPILUMAB [Suspect]
     Active Substance: DUPILUMAB
     Dosage: 300 MG, QOW
     Route: 058
     Dates: start: 2020
  3. DUPILUMAB [Suspect]
     Active Substance: DUPILUMAB
     Indication: DERMATITIS ATOPIC
     Dosage: 300 MG, QOW
     Route: 058
     Dates: start: 20180206

REACTIONS (8)
  - Movement disorder [Unknown]
  - Arthralgia [Unknown]
  - Glaucoma [Unknown]
  - Optic nerve disorder [Unknown]
  - Rotator cuff syndrome [Unknown]
  - Fall [Unknown]
  - Product use issue [Unknown]
  - Cataract operation [Unknown]

NARRATIVE: CASE EVENT DATE: 2019
